FAERS Safety Report 5534104-7 (Version None)
Quarter: 2007Q4

REPORT INFORMATION
  Report Type: 
  Country: None (occurrence: None)
  Receive Date: 20071129
  Receipt Date: 20071129
  Transmission Date: 20080405
  Serious: Yes (Hospitalization)
  Sender: FDA-Public Use
  Company Number: None

PATIENT
  Sex: Male
  Weight: 90.7194 kg

DRUGS (2)
  1. ARIXTRA [Suspect]
     Indication: DEEP VEIN THROMBOSIS
     Dosage: 5 MG DAILY SQ
     Route: 058
  2. ARIXTRA [Suspect]
     Indication: LYMPHOMA
     Dosage: 5 MG DAILY SQ
     Route: 058

REACTIONS (1)
  - PAIN IN EXTREMITY [None]
